FAERS Safety Report 4402282-9 (Version None)
Quarter: 2004Q3

REPORT INFORMATION
  Report Type: 
  Country: None (occurrence: None)
  Receive Date: 20040720
  Receipt Date: 20031014
  Transmission Date: 20050211
  Serious: Yes (Death)
  Sender: FDA-Public Use
  Company Number: NL-GLAXOSMITHKLINE-B0312499A

PATIENT
  Sex: Male

DRUGS (2)
  1. MELPHALAN [Suspect]
     Indication: LEIOMYOSARCOMA
     Route: 042
  2. TUMOUR NECROSIS FACTOR [Suspect]
     Indication: LEIOMYOSARCOMA
     Dosage: 3MG PER DAY
     Route: 042

REACTIONS (4)
  - ABDOMINAL WALL INFECTION [None]
  - CLOSTRIDIAL INFECTION [None]
  - GAS GANGRENE [None]
  - SEPSIS [None]
